FAERS Safety Report 18425204 (Version 1)
Quarter: 2020Q4

REPORT INFORMATION
  Report Type: Spontaneous
  Country: GB (occurrence: GB)
  Receive Date: 20201026
  Receipt Date: 20201026
  Transmission Date: 20210114
  Serious: Yes (Other)
  Sender: FDA-Public Use
  Company Number: NVSC2020GB281141

PATIENT
  Age: 61 Year
  Sex: Male

DRUGS (2)
  1. RAMIPRIL. [Suspect]
     Active Substance: RAMIPRIL
     Indication: PRODUCT USED FOR UNKNOWN INDICATION
     Dosage: 10 MG, QD
     Route: 065
  2. AMLODIPINE BESILATE [Suspect]
     Active Substance: AMLODIPINE BESYLATE
     Indication: PRODUCT USED FOR UNKNOWN INDICATION
     Dosage: 10 MG, QD
     Route: 065

REACTIONS (5)
  - Neuroendocrine tumour [Unknown]
  - 5-hydroxyindolacetic acid in urine increased [Unknown]
  - Blood prolactin increased [Unknown]
  - Sex hormone binding globulin increased [Unknown]
  - Insulin-like growth factor increased [Recovering/Resolving]

NARRATIVE: CASE EVENT DATE: 2016
